FAERS Safety Report 9476403 (Version 1)
Quarter: 2013Q3

REPORT INFORMATION
  Report Type: Spontaneous
  Country: US (occurrence: None)
  Receive Date: 20130823
  Receipt Date: 20130823
  Transmission Date: 20140515
  Serious: Yes (Hospitalization)
  Sender: FDA-Public Use
  Company Number: None

PATIENT
  Age: 55 Year
  Sex: Male
  Weight: 54.5 kg

DRUGS (3)
  1. CARBOPLATIN [Suspect]
  2. PACLITAXEL (TAXOL) [Suspect]
  3. PEGFILGRASTIM [Concomitant]

REACTIONS (6)
  - Confusional state [None]
  - Anxiety [None]
  - Tachypnoea [None]
  - Hypotension [None]
  - Tachycardia [None]
  - Pyrexia [None]
